FAERS Safety Report 24813699 (Version 5)
Quarter: 2025Q1

REPORT INFORMATION
  Report Type: Spontaneous
  Country: IR (occurrence: IR)
  Receive Date: 20250107
  Receipt Date: 20250305
  Transmission Date: 20250408
  Serious: Yes (Hospitalization, Other)
  Sender: NOVARTIS
  Company Number: IR-002147023-NVSC2025IR001076

PATIENT
  Age: 32 Year
  Sex: Female
  Weight: 55 kg

DRUGS (4)
  1. JADENU [Suspect]
     Active Substance: DEFERASIROX
     Indication: Thalassaemia
     Route: 065
  2. JADENU [Suspect]
     Active Substance: DEFERASIROX
     Route: 048
     Dates: start: 20250101
  3. DESFERAL [Suspect]
     Active Substance: DEFEROXAMINE MESYLATE
     Indication: Thalassaemia
     Dosage: UNK, Q3W (500)
     Route: 042
     Dates: start: 202410, end: 20250101
  4. DESFERAL [Suspect]
     Active Substance: DEFEROXAMINE MESYLATE
     Route: 030
     Dates: start: 202410, end: 20250101

REACTIONS (5)
  - Blood iron increased [Unknown]
  - Blood creatinine increased [Unknown]
  - Pyrexia [Unknown]
  - Lethargy [Unknown]
  - Drug ineffective [Unknown]

NARRATIVE: CASE EVENT DATE: 20241001
